FAERS Safety Report 4583151-0 (Version None)
Quarter: 2005Q1

REPORT INFORMATION
  Report Type: 
  Country: None (occurrence: None)
  Receive Date: 20050125
  Receipt Date: 20041112
  Transmission Date: 20050727
  Serious: No
  Sender: FDA-Public Use
  Company Number: USA041183984

PATIENT
  Age: 56 Year
  Sex: Female
  Weight: 43 kg

DRUGS (6)
  1. FORTEO [Suspect]
     Indication: OSTEOPOROSIS
     Dosage: 20 UG/1 DAY
     Dates: start: 20041107
  2. NOVOLOG [Concomitant]
  3. LANTUS [Concomitant]
  4. PREDNISONE [Concomitant]
  5. PROGRAF [Concomitant]
  6. IMURAN [Concomitant]

REACTIONS (2)
  - ANXIETY [None]
  - INJECTION SITE ERYTHEMA [None]
